FAERS Safety Report 25474308 (Version 1)
Quarter: 2025Q2

REPORT INFORMATION
  Report Type: Spontaneous
  Country: US (occurrence: None)
  Receive Date: 20250623
  Receipt Date: 20250623
  Transmission Date: 20250717
  Serious: Yes (Hospitalization)
  Sender: FDA-CTU
  Company Number: None

PATIENT
  Sex: Female

DRUGS (6)
  1. TADALAFIL [Suspect]
     Active Substance: TADALAFIL
     Indication: Pulmonary arterial hypertension
     Dosage: FREQUENCY : DAILY;?
     Route: 048
  2. NORMAL SALINE FLUSH (10ML) [Concomitant]
  3. PUMP REMUNITY STARTER KIT [Concomitant]
  4. DEVICE [Concomitant]
     Active Substance: DEVICE
  5. REMUNITY CART W/FILL AID [Concomitant]
  6. SODIUM CHLOR SDV (50ML/FTV) [Concomitant]

REACTIONS (1)
  - Infusion site infection [None]
